FAERS Safety Report 16323873 (Version 4)
Quarter: 2020Q2

REPORT INFORMATION
  Report Type: Spontaneous
  Country: JP (occurrence: JP)
  Receive Date: 20190517
  Receipt Date: 20200417
  Transmission Date: 20200713
  Serious: Yes (Hospitalization)
  Sender: FDA-Public Use
  Company Number: JP-ROCHE-2319292

PATIENT
  Age: 64 Year
  Sex: Female
  Weight: 52 kg

DRUGS (29)
  1. ENDOXAN [CYCLOPHOSPHAMIDE] [Suspect]
     Active Substance: CYCLOPHOSPHAMIDE
     Indication: LYMPHADENOPATHY
  2. CYTARABINE. [Suspect]
     Active Substance: CYTARABINE
     Indication: LYMPHADENOPATHY
  3. METHYLPREDNISOLONE. [Suspect]
     Active Substance: METHYLPREDNISOLONE
     Indication: B-CELL LYMPHOMA REFRACTORY
     Dosage: DOSAGE IS UNCERTAIN.
     Route: 065
  4. DOXORUBICIN HYDROCHLORIDE. [Suspect]
     Active Substance: DOXORUBICIN HYDROCHLORIDE
     Indication: B-CELL LYMPHOMA REFRACTORY
     Dosage: DOSAGE IS UNCERTAIN.
     Route: 041
     Dates: end: 201812
  5. BENDAMUSTINE HYDROCHLORIDE. [Suspect]
     Active Substance: BENDAMUSTINE HYDROCHLORIDE
     Indication: LYMPHADENOPATHY
  6. PREDONINE [Suspect]
     Active Substance: PREDNISOLONE
     Indication: B-CELL LYMPHOMA REFRACTORY
     Dosage: DOSAGE IS UNCERTAIN.
     Route: 048
     Dates: start: 200510
  7. PREDNISOLONE. [Concomitant]
     Active Substance: PREDNISOLONE
     Indication: B-CELL LYMPHOMA
     Dosage: DOSAGE IS UNCERTAIN.
     Route: 065
  8. GAZYVA [Suspect]
     Active Substance: OBINUTUZUMAB
     Route: 041
     Dates: start: 20181024, end: 201811
  9. RITUXAN [Suspect]
     Active Substance: RITUXIMAB
     Indication: LYMPHADENOPATHY
  10. ETOPOSIDE. [Suspect]
     Active Substance: ETOPOSIDE
     Indication: B-CELL LYMPHOMA REFRACTORY
     Dosage: DOSAGE IS UNCERTAIN.
     Route: 041
  11. CYTARABINE. [Suspect]
     Active Substance: CYTARABINE
     Indication: B-CELL LYMPHOMA REFRACTORY
     Dosage: DOSAGE IS UNCERTAIN.
     Route: 041
  12. METHYLPREDNISOLONE. [Suspect]
     Active Substance: METHYLPREDNISOLONE
     Indication: LYMPHADENOPATHY
  13. PREDONINE [Suspect]
     Active Substance: PREDNISOLONE
     Indication: POLYMYOSITIS
  14. VICCILLIN [AMPICILLIN] [Suspect]
     Active Substance: AMPICILLIN
     Indication: ENCEPHALITIS
     Route: 065
     Dates: start: 20190429, end: 20190430
  15. VALSARTAN. [Concomitant]
     Active Substance: VALSARTAN
     Indication: HYPERTENSION
     Dosage: DOSAGE IS UNCERTAIN.
     Route: 065
  16. CARBOPLATIN. [Suspect]
     Active Substance: CARBOPLATIN
     Indication: B-CELL LYMPHOMA REFRACTORY
     Dosage: DOSAGE IS UNCERTAIN.
     Route: 041
  17. ONCOVIN [Suspect]
     Active Substance: VINCRISTINE SULFATE
     Indication: LYMPHADENOPATHY
  18. ENDOXAN [CYCLOPHOSPHAMIDE] [Suspect]
     Active Substance: CYCLOPHOSPHAMIDE
     Indication: B-CELL LYMPHOMA REFRACTORY
     Dosage: DOSAGE IS UNCERTAIN.
     Route: 041
     Dates: start: 20181024, end: 20181024
  19. LANSOPRAZOLE. [Suspect]
     Active Substance: LANSOPRAZOLE
     Indication: GASTROOESOPHAGEAL REFLUX DISEASE
     Route: 048
  20. VINCRISTINE SULFATE. [Concomitant]
     Active Substance: VINCRISTINE SULFATE
     Indication: B-CELL LYMPHOMA
     Dosage: DOSAGE IS UNCERTAIN.
     Route: 041
  21. RITUXAN [Suspect]
     Active Substance: RITUXIMAB
     Indication: B-CELL LYMPHOMA
     Dosage: DOSAGE IS UNCERTAIN.
     Route: 041
  22. DOXORUBICIN HYDROCHLORIDE. [Suspect]
     Active Substance: DOXORUBICIN HYDROCHLORIDE
     Indication: LYMPHADENOPATHY
     Dosage: DOSAGE IS UNCERTAIN.
     Route: 041
     Dates: start: 201903
  23. ONCOVIN [Suspect]
     Active Substance: VINCRISTINE SULFATE
     Indication: B-CELL LYMPHOMA REFRACTORY
     Dosage: DOSAGE IS UNCERTAIN.
     Route: 041
     Dates: start: 20181024, end: 20181024
  24. BENDAMUSTINE HYDROCHLORIDE. [Suspect]
     Active Substance: BENDAMUSTINE HYDROCHLORIDE
     Indication: B-CELL LYMPHOMA REFRACTORY
     Dosage: DOSAGE IS UNCERTAIN.
     Route: 041
  25. ETOPOSIDE. [Suspect]
     Active Substance: ETOPOSIDE
     Indication: LYMPHADENOPATHY
  26. GAZYVA [Suspect]
     Active Substance: OBINUTUZUMAB
     Indication: B-CELL LYMPHOMA
     Route: 041
     Dates: start: 201903, end: 20190325
  27. CARBOPLATIN. [Suspect]
     Active Substance: CARBOPLATIN
     Indication: LYMPHADENOPATHY
  28. PREDONINE [Suspect]
     Active Substance: PREDNISOLONE
     Indication: LYMPHADENOPATHY
  29. CYCLOPHOSPHAMIDE. [Concomitant]
     Active Substance: CYCLOPHOSPHAMIDE
     Indication: B-CELL LYMPHOMA
     Dosage: DOSAGE IS UNCERTAIN.
     Route: 065

REACTIONS (6)
  - Erythema [Recovered/Resolved]
  - Drug eruption [Unknown]
  - Sinusitis [Unknown]
  - Rash pustular [Recovered/Resolved]
  - Encephalitis [Recovered/Resolved]
  - Listeria sepsis [Recovered/Resolved]

NARRATIVE: CASE EVENT DATE: 20190422
